FAERS Safety Report 22013385 (Version 2)
Quarter: 2023Q1

REPORT INFORMATION
  Report Type: Spontaneous
  Country: US (occurrence: US)
  Receive Date: 20230220
  Receipt Date: 20230330
  Transmission Date: 20230417
  Serious: No
  Sender: FDA-Public Use
  Company Number: US-009507513-2302USA000777

PATIENT
  Age: 81 Year
  Sex: Male

DRUGS (8)
  1. MOLNUPIRAVIR [Suspect]
     Active Substance: MOLNUPIRAVIR
     Indication: COVID-19 treatment
     Dosage: 800 MILLIGRAM, EVERY 12 HOURS FOR 5 DAYS.
     Route: 048
     Dates: start: 20221107, end: 20221111
  2. LUPRON DEPOT [Concomitant]
     Active Substance: LEUPROLIDE ACETATE
  3. CASODEX [Concomitant]
     Active Substance: BICALUTAMIDE
  4. LISINOPRIL [Concomitant]
     Active Substance: LISINOPRIL
  5. SIMVASTATIN [Concomitant]
     Active Substance: SIMVASTATIN
  6. METOPROLOL [Concomitant]
     Active Substance: METOPROLOL
  7. ELIQUIS [Concomitant]
     Active Substance: APIXABAN
  8. LEXAPRO [Concomitant]
     Active Substance: ESCITALOPRAM OXALATE

REACTIONS (4)
  - Vertigo positional [Recovering/Resolving]
  - Sinus congestion [Recovering/Resolving]
  - Feeling abnormal [Recovering/Resolving]
  - Vomiting [Recovering/Resolving]

NARRATIVE: CASE EVENT DATE: 20221107
